FAERS Safety Report 21254931 (Version 1)
Quarter: 2022Q3

REPORT INFORMATION
  Report Type: Spontaneous
  Country: US (occurrence: US)
  Receive Date: 20220825
  Receipt Date: 20220825
  Transmission Date: 20221027
  Serious: Yes (Other)
  Sender: FDA-Public Use
  Company Number: US-INCYTE CORPORATION-2022IN008054

PATIENT

DRUGS (2)
  1. JAKAFI [Suspect]
     Active Substance: RUXOLITINIB
     Dosage: 10 MILLIGRAM, BID
     Route: 048
  2. JAKAFI [Suspect]
     Active Substance: RUXOLITINIB
     Dosage: NEW DOSE
     Route: 065
     Dates: start: 20220817

REACTIONS (2)
  - Loss of consciousness [Unknown]
  - Fall [Unknown]

NARRATIVE: CASE EVENT DATE: 20220817
